FAERS Safety Report 13259771 (Version 2)
Quarter: 2017Q1

REPORT INFORMATION
  Report Type: Report from Study
  Country: JP (occurrence: JP)
  Receive Date: 20170222
  Receipt Date: 20170302
  Transmission Date: 20170428
  Serious: Yes (Hospitalization)
  Sender: FDA-Public Use
  Company Number: JP-MUNDIPHARMA DS AND PHARMACOVIGILANCE-GBR-2017-0043518

PATIENT
  Age: 80 Year
  Sex: Male

DRUGS (12)
  1. BUPRENORPHINE. [Suspect]
     Active Substance: BUPRENORPHINE
     Indication: CANCER PAIN
     Dosage: 5 MG, 1 PATCH PER 3 OR 4 DAYS
     Route: 062
     Dates: start: 20170208
  2. VITAMINS NOS [Concomitant]
     Active Substance: VITAMINS
     Indication: SPINAL COLUMN STENOSIS
     Dosage: 5 MCG, TID
     Route: 048
     Dates: start: 20150528
  3. PAREPLUS [Concomitant]
     Indication: DECREASED APPETITE
     Dosage: UNK
     Route: 065
     Dates: start: 20170208
  4. SULBACTAM SODIUM [Concomitant]
     Active Substance: SULBACTAM SODIUM
     Indication: PNEUMONIA
     Dosage: UNK
     Route: 065
     Dates: start: 20170211
  5. LYRICA [Concomitant]
     Active Substance: PREGABALIN
     Indication: SPINAL COLUMN STENOSIS
     Dosage: 75 MG, BID
     Route: 048
     Dates: start: 20150528
  6. OXYGEN. [Concomitant]
     Active Substance: OXYGEN
     Indication: PNEUMONIA
     Dosage: UNK
     Route: 065
     Dates: start: 20170211
  7. MAALOX ANTACID [Concomitant]
     Active Substance: ALUMINUM HYDROXIDE\DIMETHICONE\MAGNESIUM HYDROXIDE
     Indication: CHRONIC GASTRITIS
     Dosage: 1 DF, TID
     Route: 048
     Dates: start: 20161012, end: 20170215
  8. FOSAMAC [Concomitant]
     Active Substance: ALENDRONATE SODIUM
     Indication: OSTEOPOROSIS
     Dosage: 35 MG, WEEKLY
     Route: 048
     Dates: start: 20150528
  9. ENSURE                             /06184901/ [Concomitant]
     Indication: HYPOPHAGIA
     Dosage: UNK, PRN
     Route: 048
     Dates: start: 20161021
  10. LANSOPRAZOLE. [Concomitant]
     Active Substance: LANSOPRAZOLE
     Indication: CHRONIC GASTRITIS
     Dosage: 30 MG, DAILY
     Route: 048
     Dates: start: 20161102, end: 20170215
  11. LOXOPROFEN SODIUM [Concomitant]
     Active Substance: LOXOPROFEN SODIUM
     Indication: CANCER PAIN
     Dosage: 60 MG, TID
     Route: 048
     Dates: start: 20161228
  12. METHYCOBAL [Concomitant]
     Active Substance: METHYLCOBALAMIN
     Indication: SPINAL COLUMN STENOSIS
     Dosage: 500 MCG, TID
     Route: 048
     Dates: start: 20150528

REACTIONS (1)
  - Anaemia [Not Recovered/Not Resolved]

NARRATIVE: CASE EVENT DATE: 20170208
